FAERS Safety Report 4330475-8 (Version None)
Quarter: 2004Q1

REPORT INFORMATION
  Report Type: 
  Country: None (occurrence: None)
  Receive Date: 20040329
  Receipt Date: 20020717
  Transmission Date: 20041129
  Serious: Yes (Hospitalization)
  Sender: FDA-Public Use
  Company Number: 2002IC000237

PATIENT
  Age: 65 Year
  Sex: Female

DRUGS (3)
  1. FLUOROURACIL [Suspect]
     Indication: BREAST CANCER
     Dosage: 750 MG; DAY 1, 8; INTRAVENOUS
     Route: 042
     Dates: start: 20010803, end: 20010831
  2. CYCLOPHOSPHAMIDE [Suspect]
     Indication: BREAST CANCER
     Dosage: 100 MG; DAY 1-14; ORAL
     Route: 048
     Dates: start: 20010803, end: 20010906
  3. FARMORUBICIN (EPIRUBICIN) [Suspect]
     Indication: BREAST CANCER
     Dosage: 45 MG; DAY 1, 8; INTRAVENOUS
     Route: 042
     Dates: start: 20010803, end: 20010831

REACTIONS (4)
  - BONE MARROW DEPRESSION [None]
  - CHOLECYSTITIS ACUTE [None]
  - CHOLECYSTITIS CHRONIC [None]
  - WHITE BLOOD CELL COUNT INCREASED [None]
